FAERS Safety Report 17123387 (Version 1)
Quarter: 2019Q4

REPORT INFORMATION
  Report Type: Spontaneous
  Country: US (occurrence: US)
  Receive Date: 20191206
  Receipt Date: 20191206
  Transmission Date: 20200122
  Serious: No
  Sender: FDA-Public Use
  Company Number: US-ROCHE-2319346

PATIENT
  Sex: Female

DRUGS (2)
  1. OCREVUS [Suspect]
     Active Substance: OCRELIZUMAB
     Dosage: OCREVUS RESUMED-RECHALLENGED
     Route: 065
  2. OCREVUS [Suspect]
     Active Substance: OCRELIZUMAB
     Indication: MULTIPLE SCLEROSIS
     Dosage: HAD TO STOP OCREVUS INFUSION, ONGOING-NO
     Route: 065

REACTIONS (3)
  - Dizziness [Recovered/Resolved]
  - Vomiting [Recovered/Resolved]
  - Blood pressure decreased [Recovered/Resolved]
